FAERS Safety Report 4652190-3 (Version None)
Quarter: 2005Q2

REPORT INFORMATION
  Report Type: 
  Country: None (occurrence: None)
  Receive Date: 20050502
  Receipt Date: 20050418
  Transmission Date: 20051028
  Serious: Yes (Life-Threatening, Hospitalization, Disabling, Other)
  Sender: FDA-Public Use
  Company Number: 2005049958

PATIENT
  Age: 59 Year
  Sex: Male
  Weight: 100 kg

DRUGS (7)
  1. GENOTROPIN [Suspect]
     Indication: HYPOPITUITARISM
     Dosage: SUBCUTANEOUS
     Route: 058
  2. IRBESARTAN [Concomitant]
  3. BUMETANIDE [Concomitant]
  4. ATORVASTATIN CALCIUM [Concomitant]
  5. HYDROCORTISONE [Concomitant]
  6. TESTOSTERONE [Concomitant]
  7. VALPROATE SODIUM [Concomitant]

REACTIONS (1)
  - COLON CANCER [None]
